FAERS Safety Report 8785948 (Version 1)
Quarter: 2012Q4

REPORT INFORMATION
  Report Type: Spontaneous
  Country: TR (occurrence: None)
  Receive Date: 20120905
  Receipt Date: 20120905
  Transmission Date: 20130627
  Serious: Yes (Other)
  Sender: FDA-Public Use
  Company Number: FK201202458

PATIENT
  Age: 34 Year
  Sex: Female

DRUGS (4)
  1. INDOMETHACIN [Suspect]
     Indication: HEADACHE
  2. TOPIRAMATE [Suspect]
     Indication: HEADACHE
  3. PAIN MEDICATION [Concomitant]
  4. NONSTEROIDAL ANTI-INFLAMMATORY DRUGS [Concomitant]

REACTIONS (4)
  - Nausea [None]
  - Dizziness [None]
  - Hypotension [None]
  - Drug intolerance [None]
